FAERS Safety Report 12376873 (Version 2)
Quarter: 2016Q2

REPORT INFORMATION
  Report Type: Report from Study
  Country: US (occurrence: US)
  Receive Date: 20160517
  Receipt Date: 20160517
  Transmission Date: 20160815
  Serious: No
  Sender: FDA-Public Use
  Company Number: US-MALLINCKRODT-T201503098

PATIENT
  Age: 60 Year
  Sex: Male

DRUGS (1)
  1. REPOSITORY CORTICOTROPIN INJECTION [Suspect]
     Active Substance: CORTICOTROPIN
     Indication: SARCOIDOSIS
     Dosage: 80 UNITS, TWICE WEEKLY
     Route: 058
     Dates: start: 20150602

REACTIONS (6)
  - Constipation [Unknown]
  - Insomnia [Unknown]
  - Dyspnoea [Recovering/Resolving]
  - Visual impairment [Recovering/Resolving]
  - Food craving [Not Recovered/Not Resolved]
  - Weight increased [Not Recovered/Not Resolved]

NARRATIVE: CASE EVENT DATE: 201506
